FAERS Safety Report 5671955-2 (Version None)
Quarter: 2008Q1

REPORT INFORMATION
  Report Type: 
  Country: None (occurrence: None)
  Receive Date: 20080319
  Receipt Date: 20080318
  Transmission Date: 20080703
  Serious: Yes (Congenital Anomaly)
  Sender: FDA-Public Use
  Company Number: DK-WYE-G01234508

PATIENT
  Sex: Female

DRUGS (6)
  1. EFFEXOR [Suspect]
     Indication: DEPRESSION
     Route: 064
     Dates: start: 20040101, end: 20070710
  2. LAMICTAL [Suspect]
     Indication: DEPRESSION
     Route: 064
     Dates: start: 20040101, end: 20070710
  3. CORDARONE [Concomitant]
     Indication: ARRHYTHMIA
  4. ZOLOFT [Suspect]
     Indication: DEPRESSION
     Dosage: FILM-COATED TABLET
     Route: 064
     Dates: start: 20070710
  5. SELO-ZOK [Suspect]
     Indication: ARRHYTHMIA
     Route: 064
     Dates: start: 20071023
  6. SEROQUEL [Suspect]
     Indication: DEPRESSION
     Route: 064
     Dates: start: 20040101, end: 20070710

REACTIONS (3)
  - CEREBRAL VENTRICLE DILATATION [None]
  - DRUG EXPOSURE DURING PREGNANCY [None]
  - FOETAL GROWTH RETARDATION [None]
